FAERS Safety Report 17166420 (Version 1)
Quarter: 2019Q4

REPORT INFORMATION
  Report Type: Spontaneous
  Country: US (occurrence: US)
  Receive Date: 20191217
  Receipt Date: 20191217
  Transmission Date: 20200122
  Serious: Yes (Other)
  Sender: FDA-Public Use
  Company Number: US-B.BRAUN MEDICAL INC.-2077928

PATIENT
  Age: 56 Year
  Sex: Male

DRUGS (1)
  1. DEXTROSE AND SODIUM CHLORIDE INJECTIONS USP 0264-7605-00 0264-7605-10 [Suspect]
     Active Substance: DEXTROSE\SODIUM CHLORIDE

REACTIONS (2)
  - Blood sodium increased [None]
  - Medication error [None]
